FAERS Safety Report 22718563 (Version 6)
Quarter: 2024Q4

REPORT INFORMATION
  Report Type: Spontaneous
  Country: US (occurrence: US)
  Receive Date: 20230718
  Receipt Date: 20241202
  Transmission Date: 20250115
  Serious: No
  Sender: SANOFI AVENTIS
  Company Number: US-SA-SAC20230713001169

PATIENT
  Age: 10 Year
  Sex: Female

DRUGS (4)
  1. DUPIXENT [Suspect]
     Active Substance: DUPILUMAB
     Indication: Dermatitis atopic
     Dosage: 200 MG, 1X
     Route: 058
     Dates: start: 20230709, end: 20230709
  2. DUPIXENT [Suspect]
     Active Substance: DUPILUMAB
     Indication: Eczema
     Dosage: 200 MG, QOW
     Route: 058
     Dates: start: 202307, end: 2024
  3. DUPIXENT [Suspect]
     Active Substance: DUPILUMAB
     Dosage: 200 MG, QOW
     Route: 058
  4. HYDROCORTISONE [Concomitant]
     Active Substance: HYDROCORTISONE
     Indication: Dermatitis atopic
     Dosage: UNK

REACTIONS (6)
  - Injection site pain [Recovered/Resolved]
  - Rash [Recovered/Resolved]
  - Conjunctivitis allergic [Recovering/Resolving]
  - Ocular hyperaemia [Not Recovered/Not Resolved]
  - Dermatitis atopic [Unknown]
  - Erythema [Unknown]

NARRATIVE: CASE EVENT DATE: 20230709
